FAERS Safety Report 13673885 (Version 2)
Quarter: 2017Q2

REPORT INFORMATION
  Report Type: Spontaneous
  Country: JP (occurrence: JP)
  Receive Date: 20170621
  Receipt Date: 20170628
  Transmission Date: 20170830
  Serious: Yes (Death)
  Sender: FDA-Public Use
  Company Number: JP-PFIZER INC-2017268161

PATIENT
  Age: 68 Year
  Sex: Male
  Weight: 61 kg

DRUGS (13)
  1. CAMPTO [Suspect]
     Active Substance: IRINOTECAN
     Dosage: 160 MG, 1X/DAY
     Route: 041
     Dates: start: 20170410, end: 20170410
  2. CANDESARTAN. [Concomitant]
     Active Substance: CANDESARTAN
     Dosage: UNK
     Dates: start: 20160118, end: 20170423
  3. LANSOPRAZOLE. [Concomitant]
     Active Substance: LANSOPRAZOLE
     Dosage: UNK
     Dates: start: 20160305, end: 20170509
  4. AVASTIN [Suspect]
     Active Substance: BEVACIZUMAB
     Dosage: 315 MG, 1X/DAY
     Route: 041
  5. 5-FU [Concomitant]
     Active Substance: FLUOROURACIL
     Dosage: UNK
     Route: 040
     Dates: start: 20170307, end: 20170307
  6. AVASTIN [Suspect]
     Active Substance: BEVACIZUMAB
     Dosage: 315 MG, 1X/DAY
     Route: 041
     Dates: start: 20170410, end: 20170410
  7. LEVOFOLINATE [Concomitant]
     Active Substance: LEVOLEUCOVORIN CALCIUM
     Dosage: UNK
     Route: 042
     Dates: start: 20170307, end: 20170307
  8. CAMPTO [Suspect]
     Active Substance: IRINOTECAN
     Indication: RECTAL CANCER
     Dosage: 160 MG, 1X/DAY (160 MG/BODY (97.1 MG/M2))
     Route: 041
     Dates: start: 20170307, end: 20170307
  9. AVASTIN [Suspect]
     Active Substance: BEVACIZUMAB
     Indication: RECTAL CANCER
     Dosage: 315 MG, 1X/DAY (315 MG/BODY, TOTAL OF 3 CYCLES UNTIL 10/APR/2017)
     Route: 041
     Dates: start: 20170307, end: 20170307
  10. PREDNISOLONE. [Concomitant]
     Active Substance: PREDNISOLONE
     Dosage: UNK
     Dates: start: 20170427, end: 20170507
  11. CAMPTO [Suspect]
     Active Substance: IRINOTECAN
     Dosage: 160 MG, 1X/DAY
     Route: 041
  12. METHYLPREDNISOLONE SODIUM SUCCINATE. [Concomitant]
     Active Substance: METHYLPREDNISOLONE SODIUM SUCCINATE
     Dosage: UNK
     Dates: start: 20170424, end: 20170510
  13. BROTIZOLAM [Concomitant]
     Active Substance: BROTIZOLAM
     Dosage: UNK
     Dates: start: 20170306, end: 20170509

REACTIONS (1)
  - Interstitial lung disease [Fatal]

NARRATIVE: CASE EVENT DATE: 20170410
